FAERS Safety Report 5758330-7 (Version None)
Quarter: 2008Q2

REPORT INFORMATION
  Report Type: 
  Country: None (occurrence: None)
  Receive Date: 20080604
  Receipt Date: 20080521
  Transmission Date: 20081010
  Serious: Yes (Death, Disabling)
  Sender: FDA-Public Use
  Company Number: US-BRISTOL-MYERS SQUIBB COMPANY-14037188

PATIENT
  Age: 55 Year
  Sex: Male

DRUGS (3)
  1. ORENCIA [Suspect]
     Indication: RHEUMATOID ARTHRITIS
     Dosage: AGAIN GIVEN ON JAN 2, 2008.
     Route: 042
     Dates: start: 20071201
  2. PREDNISONE TAB [Suspect]
     Route: 042
  3. HUMIRA [Concomitant]

REACTIONS (4)
  - MUSCLE SPASMS [None]
  - NEUROPATHY PERIPHERAL [None]
  - SEPSIS [None]
  - VASCULITIS [None]
